FAERS Safety Report 8841332 (Version 3)
Quarter: 2012Q4

REPORT INFORMATION
  Report Type: 
  Country: US (occurrence: US)
  Receive Date: 20121015
  Receipt Date: 20121121
  Transmission Date: 20130627
  Serious: Yes (Other)
  Sender: FDA-Public Use
  Company Number: US-PFIZER INC-2012250892

PATIENT
  Sex: Female

DRUGS (2)
  1. PREMARIN VAGINAL CREAM [Suspect]
     Indication: HORMONE REPLACEMENT THERAPY
     Dosage: UNK, three times a week
     Route: 067
  2. PREMARIN VAGINAL CREAM [Suspect]
     Dosage: UNK
     Route: 067

REACTIONS (1)
  - Foot fracture [Unknown]
